FAERS Safety Report 5799664-X (Version None)
Quarter: 2008Q3

REPORT INFORMATION
  Report Type: 
  Country: None (occurrence: None)
  Receive Date: 20080702
  Receipt Date: 20080702
  Transmission Date: 20090109
  Serious: Yes (Other)
  Sender: FDA-Public Use
  Company Number: None

PATIENT
  Sex: Male
  Weight: 81.1939 kg

DRUGS (7)
  1. DIGITEK 0.05MG ACTAVIS [Suspect]
     Indication: ARRHYTHMIA
     Dosage: 1 DAILY SEVERAL YEARS
  2. SYNTHROID [Concomitant]
  3. ATENOLOL [Concomitant]
  4. FUROSEMIDE [Concomitant]
  5. POTASSIUM CHLORIDE [Concomitant]
  6. CARTIA XT [Concomitant]
  7. WARFARIN SODIUM [Concomitant]

REACTIONS (2)
  - DYSPNOEA [None]
  - NAUSEA [None]
